FAERS Safety Report 8584337 (Version 2)
Quarter: 2012Q4

REPORT INFORMATION
  Report Type: 
  Country: EG (occurrence: EG)
  Receive Date: 20120529
  Receipt Date: 20120906
  Transmission Date: 20130627
  Serious: Yes (Life-Threatening)
  Sender: FDA-Public Use
  Company Number: EG-BAXTER-2012BAX006360

PATIENT
  Sex: Male

DRUGS (1)
  1. HUMAN ALBUMIN [Suspect]
     Indication: DRUG USE FOR UNKNOWN INDICATION
     Dosage: 200G/L

REACTIONS (2)
  - Anaphylactic shock [Not Recovered/Not Resolved]
  - Suspected counterfeit product [Unknown]
